FAERS Safety Report 5474101-3 (Version None)
Quarter: 2007Q3

REPORT INFORMATION
  Report Type: 
  Country: None (occurrence: None)
  Receive Date: 20070928
  Receipt Date: 20070928
  Transmission Date: 20080115
  Serious: Yes (Hospitalization)
  Sender: FDA-Public Use
  Company Number: None

PATIENT
  Age: 61 Year
  Sex: Female
  Weight: 65.7716 kg

DRUGS (2)
  1. LAMICTAL [Suspect]
     Indication: BIPOLAR DISORDER
     Dosage: 25MG DAILY 2 WEEKS ORAL
     Route: 048
     Dates: start: 20070808, end: 20070902
  2. LAMICTAL [Suspect]
     Dosage: 50 MG DAILY 2 WEEKS ORAL
     Route: 048

REACTIONS (4)
  - HEADACHE [None]
  - HEPATITIS [None]
  - PYREXIA [None]
  - RASH [None]
